FAERS Safety Report 6160172-8 (Version None)
Quarter: 2009Q2

REPORT INFORMATION
  Report Type: 
  Country: None (occurrence: None)
  Receive Date: 20090420
  Receipt Date: 20090410
  Transmission Date: 20091009
  Serious: Yes (Hospitalization)
  Sender: FDA-Public Use
  Company Number: A0779248A

PATIENT
  Age: 55 Year
  Sex: Male
  Weight: 85.5 kg

DRUGS (6)
  1. AVANDIA [Suspect]
     Indication: DIABETES MELLITUS
     Dosage: 8MG PER DAY
     Route: 048
     Dates: start: 20020221, end: 20041101
  2. AVANDAMET [Suspect]
     Indication: DIABETES MELLITUS
     Route: 048
     Dates: start: 20051018, end: 20070101
  3. LIPITOR [Concomitant]
  4. CLONAZEPAM [Concomitant]
  5. LISINOPRIL [Concomitant]
  6. TRAMADOL HCL [Concomitant]

REACTIONS (1)
  - MYOCARDIAL INFARCTION [None]
